FAERS Safety Report 4410031-3 (Version None)
Quarter: 2004Q3

REPORT INFORMATION
  Report Type: 
  Country: None (occurrence: None)
  Receive Date: 20040726
  Receipt Date: 20040329
  Transmission Date: 20050211
  Serious: Yes (Hospitalization)
  Sender: FDA-Public Use
  Company Number: 2004UW03569

PATIENT
  Age: 70 Year
  Sex: Male
  Weight: 42 kg

DRUGS (1)
  1. GEFITINIB [Suspect]
     Indication: NON-SMALL CELL LUNG CANCER
     Dosage: 250 MG QD PO
     Route: 048
     Dates: start: 20040210

REACTIONS (8)
  - BLOOD PRESSURE DECREASED [None]
  - DEHYDRATION [None]
  - DIARRHOEA [None]
  - LUNG ABSCESS [None]
  - PNEUMONITIS [None]
  - PRODUCTIVE COUGH [None]
  - PULMONARY RADIATION INJURY [None]
  - VOMITING [None]
